FAERS Safety Report 7409807-X (Version None)
Quarter: 2011Q2

REPORT INFORMATION
  Report Type: 
  Country: None (occurrence: None)
  Receive Date: 20110405
  Receipt Date: 20110330
  Transmission Date: 20111010
  Serious: Yes (Hospitalization)
  Sender: FDA-Public Use
  Company Number: 2011SP014607

PATIENT
  Age: 33 Year
  Sex: Female
  Weight: 54.4316 kg

DRUGS (3)
  1. GLEEVEC [Concomitant]
  2. IMPLANON [Suspect]
     Indication: CONTRACEPTION
     Dosage: 1 DF;SUBD
     Route: 059
     Dates: start: 20101001
  3. METFORMIN [Concomitant]

REACTIONS (8)
  - DRUG INEFFECTIVE [None]
  - GLUCOSE TOLERANCE IMPAIRED [None]
  - CYSTITIS [None]
  - FALLOPIAN TUBE DISORDER [None]
  - URINARY TRACT INFECTION [None]
  - BLOOD URINE PRESENT [None]
  - GASTROINTESTINAL STROMAL TUMOUR [None]
  - OVARIAN DISORDER [None]
